APPROVED DRUG PRODUCT: TAMOXIFEN CITRATE
Active Ingredient: TAMOXIFEN CITRATE
Strength: EQ 20MG BASE
Dosage Form/Route: TABLET;ORAL
Application: A074732 | Product #001 | TE Code: AB
Applicant: MYLAN PHARMACEUTICALS INC
Approved: Feb 20, 2003 | RLD: No | RS: No | Type: RX